FAERS Safety Report 6224433-6 (Version None)
Quarter: 2009Q2

REPORT INFORMATION
  Report Type: 
  Country: None (occurrence: None)
  Receive Date: 20090612
  Receipt Date: 20090319
  Transmission Date: 20091009
  Serious: No
  Sender: FDA-Public Use
  Company Number: US-ABBOTT-09P-163-0563635-00

PATIENT
  Sex: Male
  Weight: 88.53 kg

DRUGS (4)
  1. HUMIRA [Suspect]
     Indication: RHEUMATOID ARTHRITIS
     Route: 058
     Dates: start: 20070101, end: 20080901
  2. HUMIRA [Suspect]
     Route: 058
     Dates: start: 20080901
  3. IBUPROFEN [Concomitant]
     Indication: RHEUMATOID ARTHRITIS
  4. TRAMADOL HCL [Concomitant]
     Indication: RHEUMATOID ARTHRITIS

REACTIONS (5)
  - DRUG INEFFECTIVE [None]
  - FEELING COLD [None]
  - INJECTION SITE IRRITATION [None]
  - INJECTION SITE PAIN [None]
  - PARAESTHESIA [None]
